FAERS Safety Report 16613810 (Version 1)
Quarter: 2019Q3

REPORT INFORMATION
  Report Type: Spontaneous
  Country: FR (occurrence: FR)
  Receive Date: 20190723
  Receipt Date: 20190723
  Transmission Date: 20191004
  Serious: Yes (Hospitalization)
  Sender: FDA-Public Use
  Company Number: FR-PFIZER INC-2019304537

PATIENT
  Age: 74 Year
  Sex: Female
  Weight: 90.8 kg

DRUGS (6)
  1. CYTARABINE ACCORD [Suspect]
     Active Substance: CYTARABINE
     Indication: ACUTE LEUKAEMIA
     Dosage: 385 MG, CYCLIC
     Route: 042
     Dates: start: 20190601, end: 20190608
  2. ZAVEDOS [Suspect]
     Active Substance: IDARUBICIN
     Indication: ACUTE LEUKAEMIA
     Dosage: 23.15 MG, CYCLIC
     Route: 042
     Dates: start: 20190604, end: 20190606
  3. ZOPHREN [ONDANSETRON] [Suspect]
     Active Substance: ONDANSETRON
     Indication: PROPHYLAXIS OF NAUSEA AND VOMITING
     Dosage: 16 MG, 1X/DAY
     Route: 042
     Dates: start: 20190601, end: 20190608
  4. FASTURTEC [Suspect]
     Active Substance: RASBURICASE
     Indication: HYPERURICAEMIA
     Dosage: 1 DF, SINGLE
     Route: 042
     Dates: start: 20190602, end: 20190602
  5. CEFTRIAXONE MYLAN [Suspect]
     Active Substance: CEFTRIAXONE
     Indication: APLASIA
     Dosage: 2 G, 1X/DAY
     Route: 042
     Dates: start: 20190530, end: 20190605
  6. DEXAMETHASON [DEXAMETHASONE] [Suspect]
     Active Substance: DEXAMETHASONE
     Indication: INFLAMMATION
     Dosage: 20 MG, 1X/DAY (1-0-1)
     Route: 042
     Dates: start: 20190530, end: 20190602

REACTIONS (2)
  - Rash maculo-papular [Recovering/Resolving]
  - Palmar-plantar erythrodysaesthesia syndrome [Recovering/Resolving]

NARRATIVE: CASE EVENT DATE: 20190607
